FAERS Safety Report 7954048-0 (Version None)
Quarter: 2011Q4

REPORT INFORMATION
  Report Type: 
  Country: None (occurrence: None)
  Receive Date: 20111129
  Receipt Date: 20111115
  Transmission Date: 20120403
  Serious: Yes (Hospitalization)
  Sender: FDA-Public Use
  Company Number: 2011110104

PATIENT
  Age: 78 Year
  Sex: Female

DRUGS (5)
  1. UNSPECIFIED HIGH BLOOD PRESSURE MEDICATION [Concomitant]
  2. LIPITOR [Concomitant]
  3. CARISOPRODOL [Suspect]
     Indication: BACK PAIN
     Dosage: 1050 MG (350 MG,3 IN 1 AS REQUIRED),ORAL
     Route: 047
     Dates: start: 20111101
  4. AMBIEN [Concomitant]
  5. TYLENOL #4 (CODEINE, ACETAMINOPHEN) [Concomitant]

REACTIONS (4)
  - INCORRECT DOSE ADMINISTERED [None]
  - ACCIDENTAL EXPOSURE [None]
  - SPEECH DISORDER [None]
  - MOVEMENT DISORDER [None]
